FAERS Safety Report 16980757 (Version 1)
Quarter: 2019Q4

REPORT INFORMATION
  Report Type: Spontaneous
  Country: US (occurrence: US)
  Receive Date: 20191031
  Receipt Date: 20191031
  Transmission Date: 20200122
  Serious: Yes (Hospitalization, Other)
  Sender: FDA-Public Use
  Company Number: US-009507513-1910USA017344

PATIENT
  Age: 25 Year
  Sex: Female

DRUGS (3)
  1. NUVARING [Suspect]
     Active Substance: ETHINYL ESTRADIOL\ETONOGESTREL
     Indication: HORMONE LEVEL ABNORMAL
  2. NUVARING [Suspect]
     Active Substance: ETHINYL ESTRADIOL\ETONOGESTREL
     Indication: OVARIAN FAILURE
     Dosage: 1 RING, INSERTED FOR 24 DAYS AND THEN REMOVED FOR 4 DAYS
     Route: 067
     Dates: start: 2011
  3. LEVOTHYROXINE SODIUM. [Concomitant]
     Active Substance: LEVOTHYROXINE SODIUM
     Dosage: UNK

REACTIONS (6)
  - Product use in unapproved indication [Unknown]
  - Nephrolithiasis [Not Recovered/Not Resolved]
  - Discomfort [Not Recovered/Not Resolved]
  - Kidney infection [Not Recovered/Not Resolved]
  - Inappropriate schedule of product administration [Unknown]
  - Device expulsion [Unknown]

NARRATIVE: CASE EVENT DATE: 2011
